FAERS Safety Report 8598345-7 (Version None)
Quarter: 2012Q3

REPORT INFORMATION
  Report Type: 
  Country: None (occurrence: None)
  Receive Date: 20120816
  Receipt Date: 20120814
  Transmission Date: 20120928
  Serious: Yes (Life-Threatening, Hospitalization, Other)
  Sender: FDA-Public Use
  Company Number: US-ELI_LILLY_AND_COMPANY-US201204002742

PATIENT
  Sex: Male
  Weight: 118.82 kg

DRUGS (6)
  1. ANTIPSYCHOTICS [Concomitant]
  2. LOTRIL                             /00574902/ [Concomitant]
     Dosage: 5-10MG, QD
  3. LOZAL [Concomitant]
     Dosage: 1.25 MG, UNK
  4. AXIRON [Suspect]
     Indication: BLOOD TESTOSTERONE DECREASED
     Dosage: 60 MG, QD
     Dates: start: 20110913
  5. M.V.I. [Concomitant]
  6. LIPITOR [Concomitant]
     Dosage: 40 MG, UNK

REACTIONS (2)
  - DEEP VEIN THROMBOSIS [None]
  - PULMONARY EMBOLISM [None]
